FAERS Safety Report 5381086-7 (Version None)
Quarter: 2007Q3

REPORT INFORMATION
  Report Type: 
  Country: None (occurrence: None)
  Receive Date: 20070706
  Receipt Date: 20070627
  Transmission Date: 20080115
  Serious: Yes (Other)
  Sender: FDA-Public Use
  Company Number: US-PFIZER INC-2007023697

PATIENT
  Sex: Female
  Weight: 69.9 kg

DRUGS (20)
  1. NEURONTIN [Suspect]
     Indication: MUSCULOSKELETAL DISCOMFORT
     Dates: start: 20040101, end: 20050101
  2. LYRICA [Suspect]
     Indication: NEURALGIA
  3. LYRICA [Suspect]
     Indication: SCIATICA
  4. ARTHROTEC [Suspect]
     Indication: INTERVERTEBRAL DISC DEGENERATION
  5. LIPITOR [Suspect]
     Indication: BLOOD CHOLESTEROL INCREASED
  6. HYDROCHLOROTHIAZIDE [Concomitant]
  7. BUSPAR [Concomitant]
  8. TOPROL-XL [Concomitant]
  9. ALBUTEROL [Concomitant]
  10. ALL OTHER THERAPEUTIC PRODUCTS [Concomitant]
  11. FLEXERIL [Concomitant]
  12. CYMBALTA [Concomitant]
  13. TRAMADOL HCL [Concomitant]
  14. NEXIUM [Concomitant]
  15. MONTELUKAST SODIUM [Concomitant]
  16. ULTRACET [Concomitant]
  17. PREVACID [Concomitant]
  18. ALL OTHER THERAPEUTIC PRODUCTS [Concomitant]
  19. HYDROCORT [Concomitant]
  20. MONTELUKAST SODIUM [Concomitant]

REACTIONS (7)
  - ASTHENIA [None]
  - BLOOD CREATININE INCREASED [None]
  - BLOOD ERYTHROPOIETIN DECREASED [None]
  - HAEMOGLOBIN DECREASED [None]
  - LABORATORY TEST ABNORMAL [None]
  - SWELLING [None]
  - WEIGHT INCREASED [None]
